FAERS Safety Report 13693408 (Version 1)
Quarter: 2017Q2

REPORT INFORMATION
  Report Type: Spontaneous
  Country: US (occurrence: US)
  Receive Date: 20170626
  Receipt Date: 20170626
  Transmission Date: 20170830
  Serious: Yes (Life-Threatening, Disabling)
  Sender: FDA-Public Use
  Company Number: None

PATIENT
  Age: 40 Year
  Sex: Female
  Weight: 49.5 kg

DRUGS (1)
  1. LIBRIUM [Suspect]
     Active Substance: CHLORDIAZEPOXIDE HYDROCHLORIDE
     Indication: DRUG WITHDRAWAL SYNDROME
     Route: 048
     Dates: start: 20150825

REACTIONS (25)
  - Anxiety [None]
  - Asthenia [None]
  - Suicidal ideation [None]
  - Restlessness [None]
  - Decreased appetite [None]
  - Depression [None]
  - Feeling abnormal [None]
  - Fatigue [None]
  - Withdrawal syndrome [None]
  - Insomnia [None]
  - Muscle twitching [None]
  - Dyspnoea [None]
  - Quality of life decreased [None]
  - Muscle spasms [None]
  - Depersonalisation/derealisation disorder [None]
  - Dizziness [None]
  - Weight decreased [None]
  - Heart rate increased [None]
  - Choking [None]
  - Nausea [None]
  - Diarrhoea [None]
  - Myoclonus [None]
  - Feeling of despair [None]
  - Oesophageal spasm [None]
  - Burning sensation [None]

NARRATIVE: CASE EVENT DATE: 20151005
